FAERS Safety Report 5305332-0 (Version None)
Quarter: 2007Q2

REPORT INFORMATION
  Report Type: 
  Country: None (occurrence: None)
  Receive Date: 20070416
  Receipt Date: 20070403
  Transmission Date: 20071010
  Serious: Yes (Hospitalization)
  Sender: FDA-Public Use
  Company Number: FSC_0087_2007

PATIENT
  Age: 71 Year
  Sex: Female

DRUGS (4)
  1. VASOLAN [Suspect]
     Indication: ARRHYTHMIA
     Dosage: DF PO
     Route: 048
     Dates: start: 20061128, end: 20061208
  2. LIPOVAS [Concomitant]
  3. BENET [Concomitant]
  4. ONEALFA [Concomitant]

REACTIONS (3)
  - EYE INFECTION [None]
  - STEVENS-JOHNSON SYNDROME [None]
  - STOMACH DISCOMFORT [None]
